FAERS Safety Report 9308014 (Version 1)
Quarter: 2013Q2

REPORT INFORMATION
  Report Type: Spontaneous
  Country: US (occurrence: US)
  Receive Date: 20130524
  Receipt Date: 20130524
  Transmission Date: 20140414
  Serious: No
  Sender: FDA-Public Use
  Company Number: US-PFIZER INC-2013123358

PATIENT
  Age: 68 Year
  Sex: Female
  Weight: 48.99 kg

DRUGS (1)
  1. MOTRIN IB [Suspect]
     Indication: INFLAMMATION
     Dosage: ONE DOSE ONCE EVERY 8 HOURS
     Route: 048
     Dates: start: 20130308, end: 2013

REACTIONS (1)
  - Abdominal discomfort [Recovered/Resolved]
